FAERS Safety Report 17072686 (Version 2)
Quarter: 2020Q1

REPORT INFORMATION
  Report Type: Spontaneous
  Country: US (occurrence: US)
  Receive Date: 20191125
  Receipt Date: 20200117
  Transmission Date: 20200409
  Serious: Yes (Hospitalization, Other)
  Sender: FDA-Public Use
  Company Number: US-PFIZER INC-2019505287

PATIENT
  Age: 71 Year
  Sex: Male
  Weight: 70.75 kg

DRUGS (1)
  1. LYRICA [Suspect]
     Active Substance: PREGABALIN
     Indication: MUSCULOSKELETAL DISCOMFORT
     Dosage: 50 MG, 2X/DAY
     Dates: start: 201906

REACTIONS (7)
  - Poor quality sleep [Unknown]
  - Bed bug infestation [Not Recovered/Not Resolved]
  - Off label use [Unknown]
  - Product use in unapproved indication [Unknown]
  - Hallucination, visual [Unknown]
  - Formication [Unknown]
  - Pain [Unknown]

NARRATIVE: CASE EVENT DATE: 2019
